FAERS Safety Report 6204452-6 (Version None)
Quarter: 2009Q2

REPORT INFORMATION
  Report Type: 
  Country: None (occurrence: None)
  Receive Date: 20090527
  Receipt Date: 20090429
  Transmission Date: 20091009
  Serious: No
  Sender: FDA-Public Use
  Company Number: US-BAYER-200911359BCC

PATIENT
  Age: 83 Year
  Sex: Female
  Weight: 60 kg

DRUGS (3)
  1. ALEVE [Suspect]
     Indication: ARTHRITIS
     Dosage: TOTAL DAILY DOSE: 220 MG  UNIT DOSE: 220 MG
     Route: 048
     Dates: start: 20090101, end: 20090428
  2. ALEVE [Suspect]
     Dosage: 1 TO 3 ALEVE TABLETS AS NEEDED
     Route: 048
     Dates: start: 19990101, end: 20090101
  3. HYDROCHLOROTHIAZIDE [Concomitant]
     Indication: DRUG USE FOR UNKNOWN INDICATION
     Dosage: UNIT DOSE: 12 MG
     Route: 048
     Dates: start: 20080801

REACTIONS (1)
  - HYPERTENSION [None]
